FAERS Safety Report 6527948-6 (Version None)
Quarter: 2010Q1

REPORT INFORMATION
  Report Type: 
  Country: None (occurrence: None)
  Receive Date: 20100105
  Receipt Date: 20100105
  Transmission Date: 20100710
  Serious: Yes (Hospitalization)
  Sender: FDA-Public Use
  Company Number: None

PATIENT
  Sex: Female
  Weight: 97.93 kg

DRUGS (14)
  1. SAVELLA [Suspect]
     Indication: DEPRESSION
     Dosage: 100 MG DAILY AT BEDTIME PO
     Route: 048
     Dates: start: 20091110, end: 20091113
  2. XANAX [Concomitant]
  3. XANAX XR [Concomitant]
  4. BUSPAR [Concomitant]
  5. RESTORIL [Suspect]
  6. CYMBALTA [Concomitant]
  7. SEROQUEL [Concomitant]
  8. ALLEGRA [Concomitant]
  9. BENICAR [Concomitant]
  10. WELLBUTRIN XL [Concomitant]
  11. HYDROCHIOROTHIAZIDE [Concomitant]
  12. ATIVAN [Concomitant]
  13. TYLENOL 1000 [Concomitant]
  14. ASMANEX 1 [Concomitant]

REACTIONS (6)
  - CONDITION AGGRAVATED [None]
  - DEPRESSION [None]
  - FEELING OF DESPAIR [None]
  - HEADACHE [None]
  - NAUSEA [None]
  - SUICIDAL IDEATION [None]
